FAERS Safety Report 5108572-9 (Version None)
Quarter: 2006Q3

REPORT INFORMATION
  Report Type: 
  Country: None (occurrence: None)
  Receive Date: 20060919
  Receipt Date: 20060626
  Transmission Date: 20061208
  Serious: Yes (Other)
  Sender: FDA-Public Use
  Company Number: US-MERCK-0606USA05263

PATIENT
  Age: 63 Year
  Sex: Male
  Weight: 92 kg

DRUGS (6)
  1. VYTORIN [Suspect]
     Indication: HYPERLIPIDAEMIA
     Route: 048
     Dates: start: 20060316, end: 20060519
  2. SYNTHROID [Concomitant]
     Indication: HYPOTHYROIDISM
     Route: 048
     Dates: start: 19900101
  3. ASPIRIN [Concomitant]
     Route: 048
     Dates: start: 20031201
  4. TOPROL-XL [Concomitant]
     Route: 048
     Dates: start: 20031201
  5. NORVASC [Concomitant]
     Route: 048
     Dates: start: 20030901
  6. NAPROSYN [Concomitant]
     Route: 048
     Dates: start: 20040101

REACTIONS (7)
  - ARTHRALGIA [None]
  - DRUG INEFFECTIVE [None]
  - FATIGUE [None]
  - JOINT SWELLING [None]
  - MYALGIA [None]
  - OEDEMA PERIPHERAL [None]
  - WEIGHT DECREASED [None]
